FAERS Safety Report 6819485-6 (Version None)
Quarter: 2010Q3

REPORT INFORMATION
  Report Type: 
  Country: None (occurrence: None)
  Receive Date: 20100707
  Receipt Date: 20100623
  Transmission Date: 20110219
  Serious: Yes (Hospitalization, Other)
  Sender: FDA-Public Use
  Company Number: PHHY2010GB11653

PATIENT
  Sex: Male

DRUGS (6)
  1. CLOZARIL [Suspect]
     Indication: SCHIZOPHRENIA
     Dosage: 450MG/DAY
     Route: 048
     Dates: start: 20090928
  2. FRAGMIN [Suspect]
     Indication: FIBRIN D DIMER INCREASED
     Dosage: UNK
     Route: 058
     Dates: start: 20100219, end: 20100222
  3. METOCLOPRAMIDE [Concomitant]
     Indication: ABDOMINAL PAIN
     Dosage: 10MG/DAY
     Route: 048
     Dates: start: 20100225, end: 20100309
  4. OMEPRAZOLE [Concomitant]
     Indication: ABDOMINAL PAIN
     Dosage: 40MG/DAY
     Route: 048
     Dates: start: 20100225, end: 20100309
  5. ASPIRIN [Concomitant]
     Indication: MYOCARDIAL ISCHAEMIA
     Dosage: UNK
     Dates: start: 20100225
  6. DIAZEPAM [Concomitant]
     Indication: ANXIETY
     Dosage: 5MG/DAY
     Route: 048

REACTIONS (11)
  - CHEST PAIN [None]
  - CHEST X-RAY ABNORMAL [None]
  - DRUG ABUSE [None]
  - DRUG DOSE OMISSION [None]
  - DYSKINESIA [None]
  - DYSPNOEA [None]
  - FIBRIN D DIMER INCREASED [None]
  - NAUSEA [None]
  - PULMONARY EMBOLISM [None]
  - VOMITING [None]
  - WHITE BLOOD CELL COUNT INCREASED [None]
